FAERS Safety Report 23544512 (Version 1)
Quarter: 2024Q1

REPORT INFORMATION
  Report Type: Spontaneous
  Country: US (occurrence: US)
  Receive Date: 20240220
  Receipt Date: 20240220
  Transmission Date: 20240410
  Serious: No
  Sender: FDA-Public Use
  Company Number: US-ABBVIE-5644777

PATIENT
  Age: 49 Year
  Sex: Female
  Weight: 60.327 kg

DRUGS (1)
  1. SYNTHROID [Suspect]
     Active Substance: LEVOTHYROXINE SODIUM
     Indication: Hypothyroidism
     Dosage: FORM STRENGTH: 50 MICROGRAM
     Route: 048
     Dates: start: 2011, end: 20240215

REACTIONS (6)
  - Pain [Recovered/Resolved]
  - Product taste abnormal [Not Recovered/Not Resolved]
  - Movement disorder [Recovered/Resolved]
  - Feeding disorder [Recovered/Resolved]
  - Hypothyroidism [Recovered/Resolved]
  - Gait disturbance [Recovered/Resolved]

NARRATIVE: CASE EVENT DATE: 20240209
